FAERS Safety Report 23126393 (Version 3)
Quarter: 2023Q4

REPORT INFORMATION
  Report Type: Spontaneous
  Country: CA (occurrence: CA)
  Receive Date: 20231030
  Receipt Date: 20231116
  Transmission Date: 20240110
  Serious: Yes (Hospitalization)
  Sender: FDA-Public Use
  Company Number: CA-MYLANLABS-2023M1114330

PATIENT
  Sex: Male
  Weight: 93.1 kg

DRUGS (1)
  1. OGIVRI [Suspect]
     Active Substance: TRASTUZUMAB-DKST
     Indication: Salivary gland cancer
     Dosage: 798 MILLIGRAM, Q3W
     Route: 042
     Dates: start: 20230526

REACTIONS (1)
  - Epistaxis [Unknown]
